FAERS Safety Report 9275835 (Version 1)
Quarter: 2012Q4

REPORT INFORMATION
  Report Type: Spontaneous
  Country: GB (occurrence: None)
  Receive Date: 20121109
  Receipt Date: 20121109
  Transmission Date: 20130627
  Serious: Yes (Death, Hospitalization)
  Sender: FDA-Public Use
  Company Number: 2011S1000811

PATIENT
  Sex: Male

DRUGS (3)
  1. CUBICIN [Suspect]
     Route: 042
  2. CUBICIN [Suspect]
     Route: 042
  3. VANCOMYCIN [Suspect]

REACTIONS (3)
  - Treatment failure [None]
  - Infection [None]
  - Endocarditis [None]
